FAERS Safety Report 10414820 (Version 1)
Quarter: 2014Q2

REPORT INFORMATION
  Report Type: Spontaneous
  Country: US (occurrence: None)
  Receive Date: 20140604
  Receipt Date: 20140604
  Transmission Date: 20141212
  Serious: No
  Sender: FDA-Public Use
  Company Number: 163-POMAL-14034474

PATIENT
  Age: 68 Year
  Sex: Male
  Weight: 110.2 kg

DRUGS (1)
  1. POMALYST (POMALIDOMIDE) (2 MILLIGRAM, CAPSULES) [Suspect]
     Indication: PLASMA CELL MYELOMA
     Dosage: 28 IN 28D
     Route: 048
     Dates: start: 20131004

REACTIONS (1)
  - Adverse drug reaction [None]
